FAERS Safety Report 24052290 (Version 9)
Quarter: 2025Q1

REPORT INFORMATION
  Report Type: Spontaneous
  Country: US (occurrence: US)
  Receive Date: 20240704
  Receipt Date: 20250310
  Transmission Date: 20250408
  Serious: Yes (Death)
  Sender: ROCHE
  Company Number: ROCHE-10000012580

PATIENT
  Age: 71 Year
  Sex: Female
  Weight: 59.1 kg

DRUGS (1)
  1. CATHFLO ACTIVASE [Suspect]
     Active Substance: ALTEPLASE
     Indication: Product used for unknown indication
     Route: 065
     Dates: end: 20240323

REACTIONS (2)
  - Oesophageal carcinoma [Fatal]
  - Cutaneous lupus erythematosus [Unknown]

NARRATIVE: CASE EVENT DATE: 20240101
